FAERS Safety Report 8451978-0 (Version None)
Quarter: 2012Q2

REPORT INFORMATION
  Report Type: 
  Country: None (occurrence: None)
  Receive Date: 20120620
  Receipt Date: 20120327
  Transmission Date: 20120825
  Serious: No
  Sender: FDA-Public Use
  Company Number: US-VERTEX PHARMACEUTICALS INC.-AE-2012-004450

PATIENT
  Sex: Male
  Weight: 67.646 kg

DRUGS (5)
  1. INCIVEK [Suspect]
     Indication: HEPATITIS C
     Route: 048
     Dates: start: 20120322
  2. INSULIN [Concomitant]
  3. COREG [Concomitant]
  4. PEGASYS [Concomitant]
     Indication: HEPATITIS C
     Dates: start: 20120322
  5. COPEGUS [Concomitant]
     Indication: HEPATITIS C
     Dates: start: 20120322

REACTIONS (1)
  - MEDICATION ERROR [None]
